FAERS Safety Report 19185813 (Version 1)
Quarter: 2021Q2

REPORT INFORMATION
  Report Type: Spontaneous
  Country: SA (occurrence: SA)
  Receive Date: 20210427
  Receipt Date: 20210427
  Transmission Date: 20210717
  Serious: No
  Sender: FDA-Public Use
  Company Number: SA-LUPIN PHARMACEUTICALS INC.-2021-05146

PATIENT
  Age: 82 Year
  Sex: Female

DRUGS (14)
  1. CEFTRIAXONE. [Suspect]
     Active Substance: CEFTRIAXONE
     Indication: BACTERIAL PAROTITIS
     Dosage: UNK
     Route: 042
  2. CEVIMELINE. [Concomitant]
     Active Substance: CEVIMELINE
     Indication: PRODUCT USED FOR UNKNOWN INDICATION
     Dosage: UNK
     Route: 065
  3. ENALAPRIL [Concomitant]
     Active Substance: ENALAPRIL
     Indication: PRODUCT USED FOR UNKNOWN INDICATION
     Dosage: UNK
     Route: 065
  4. ERTAPENEM. [Suspect]
     Active Substance: ERTAPENEM SODIUM
     Indication: BACTERIAL PAROTITIS
     Dosage: UNK
     Route: 042
  5. RANITIDINE. [Concomitant]
     Active Substance: RANITIDINE
     Indication: PRODUCT USED FOR UNKNOWN INDICATION
     Dosage: UNK
     Route: 065
  6. CICLOSPORINE [Concomitant]
     Active Substance: CYCLOSPORINE
     Indication: PRODUCT USED FOR UNKNOWN INDICATION
     Dosage: OPHTHALMIC DROPS
     Route: 065
  7. AUGMENTIN [Suspect]
     Active Substance: AMOXICILLIN\CLAVULANATE POTASSIUM
     Indication: BACTERIAL PAROTITIS
     Dosage: UNK
     Route: 048
  8. CLINDAMYCIN. [Suspect]
     Active Substance: CLINDAMYCIN
     Indication: BACTERIAL PAROTITIS
     Dosage: UNK
     Route: 048
  9. SERTRALINE [Concomitant]
     Active Substance: SERTRALINE HYDROCHLORIDE
     Indication: PRODUCT USED FOR UNKNOWN INDICATION
     Dosage: UNK
     Route: 065
  10. SULFAMETHOXAZOLE AND TRIMETHOPRIM [Suspect]
     Active Substance: SULFAMETHOXAZOLE\TRIMETHOPRIM
     Indication: BACTERIAL PAROTITIS
     Dosage: UNK
     Route: 048
  11. FERROUS SULFATE. [Concomitant]
     Active Substance: FERROUS SULFATE
     Indication: PRODUCT USED FOR UNKNOWN INDICATION
     Dosage: UNK
     Route: 065
  12. DOXYCYCLINE. [Suspect]
     Active Substance: DOXYCYCLINE
     Indication: BACTERIAL PAROTITIS
     Dosage: UNK
     Route: 048
  13. CIPROFLOXACIN. [Suspect]
     Active Substance: CIPROFLOXACIN
     Indication: BACTERIAL PAROTITIS
     Dosage: UNK
     Route: 048
  14. HYDROCHLOROTHIAZIDE. [Concomitant]
     Active Substance: HYDROCHLOROTHIAZIDE
     Indication: PRODUCT USED FOR UNKNOWN INDICATION
     Dosage: UNK
     Route: 065

REACTIONS (1)
  - Drug ineffective [Unknown]
